FAERS Safety Report 15506237 (Version 4)
Quarter: 2018Q4

REPORT INFORMATION
  Report Type: Spontaneous
  Country: DE (occurrence: DE)
  Receive Date: 20181016
  Receipt Date: 20181119
  Transmission Date: 20190205
  Serious: Yes (Hospitalization, Other)
  Sender: FDA-Public Use
  Company Number: DE-AMGEN-DEUSP2018143510

PATIENT
  Age: 83 Year
  Sex: Female

DRUGS (1)
  1. PROLIA [Suspect]
     Active Substance: DENOSUMAB
     Indication: OSTEOPOROSIS
     Dosage: 60 MG, UNK
     Route: 058
     Dates: start: 20180328, end: 2018

REACTIONS (7)
  - Dizziness [Recovered/Resolved]
  - Feeling abnormal [Unknown]
  - Thoracic vertebral fracture [Recovered/Resolved]
  - Confusional state [Unknown]
  - Chills [Recovered/Resolved]
  - Fall [Recovered/Resolved]
  - Disorientation [Unknown]

NARRATIVE: CASE EVENT DATE: 2018
